FAERS Safety Report 6144186-X (Version None)
Quarter: 2009Q2

REPORT INFORMATION
  Report Type: 
  Country: None (occurrence: None)
  Receive Date: 20090401
  Receipt Date: 20090319
  Transmission Date: 20091009
  Serious: Yes (Life-Threatening)
  Sender: FDA-Public Use
  Company Number: ADE2009-0502

PATIENT
  Age: 66 Year
  Sex: Male

DRUGS (6)
  1. ATENOLOL [Suspect]
     Indication: ANGINA PECTORIS
     Dosage: 50MG, DAILY
  2. RIFAMPICIN [Suspect]
     Indication: PULMONARY TUBERCULOSIS
     Dosage: 600MG, DAILY
  3. ISONIAZID [Concomitant]
  4. PYRAZINAMIDE [Concomitant]
  5. ETHAMBUTOL HCL [Concomitant]
  6. PYRIDOXINE [Concomitant]

REACTIONS (1)
  - ANGINA PECTORIS [None]
